FAERS Safety Report 11550670 (Version 1)
Quarter: 2015Q3

REPORT INFORMATION
  Report Type: Spontaneous
  Country: US (occurrence: US)
  Receive Date: 20150903
  Receipt Date: 20150903
  Transmission Date: 20151125
  Serious: No
  Sender: FDA-Public Use
  Company Number: US-ELI_LILLY_AND_COMPANY-US201112007037

PATIENT
  Sex: Female

DRUGS (3)
  1. HUMALOG [Suspect]
     Active Substance: INSULIN LISPRO
     Dosage: 17 U, EACH EVENING
  2. HUMULIN N [Concomitant]
     Active Substance: INSULIN HUMAN
     Indication: TYPE 2 DIABETES MELLITUS
     Dosage: UN10 IU, EACH MORNING
     Route: 065
  3. HUMALOG [Suspect]
     Active Substance: INSULIN LISPRO
     Indication: TYPE 1 DIABETES MELLITUS
     Dosage: 10 U, EACH MORNING

REACTIONS (5)
  - Injection site bruising [Unknown]
  - Drug dose omission [Unknown]
  - Incorrect product storage [Unknown]
  - Injection site pain [Unknown]
  - Visual acuity reduced [Unknown]
